FAERS Safety Report 10141925 (Version 1)
Quarter: 2014Q2

REPORT INFORMATION
  Report Type: Spontaneous
  Country: US (occurrence: US)
  Receive Date: 20140429
  Receipt Date: 20140429
  Transmission Date: 20141212
  Serious: No
  Sender: FDA-Public Use
  Company Number: US-ASTRAZENECA-2014SE24377

PATIENT
  Sex: 0

DRUGS (10)
  1. PULMICORT [Suspect]
     Dosage: 180 MCG, ONE PUFF TWO TIMES  A  DAY
     Route: 055
     Dates: end: 2014
  2. NEXIUM [Suspect]
     Route: 048
  3. CRESTOR [Suspect]
     Route: 048
  4. METFORMIN [Concomitant]
  5. POTASSIUM [Concomitant]
  6. FUROSEMIDE [Concomitant]
  7. LYRICA [Concomitant]
  8. MAXZIDE [Concomitant]
  9. FLEXERIL [Concomitant]
  10. SINGULAIR [Concomitant]

REACTIONS (3)
  - Diabetes mellitus [Not Recovered/Not Resolved]
  - Intentional product misuse [Unknown]
  - Off label use [Unknown]
